FAERS Safety Report 22231890 (Version 1)
Quarter: 2023Q2

REPORT INFORMATION
  Report Type: Spontaneous
  Country: US (occurrence: None)
  Receive Date: 20230420
  Receipt Date: 20230420
  Transmission Date: 20230722
  Serious: No
  Sender: FDA-Public Use
  Company Number: US-ROCHE-3222808

PATIENT
  Sex: Male
  Weight: 83.082 kg

DRUGS (12)
  1. ESBRIET [Suspect]
     Active Substance: PIRFENIDONE
     Indication: Idiopathic pulmonary fibrosis
     Dosage: YES
     Route: 048
     Dates: start: 201901
  2. BRILINTA [Concomitant]
     Active Substance: TICAGRELOR
     Dosage: ONGOING YES
     Route: 048
  3. BUMETANIDE [Concomitant]
     Active Substance: BUMETANIDE
     Route: 048
  4. AMLODIPINE [Concomitant]
     Active Substance: AMLODIPINE BESYLATE
     Route: 048
  5. ATORVASTATIN [Concomitant]
     Active Substance: ATORVASTATIN
     Route: 048
  6. VITAMIN D3 [Concomitant]
     Active Substance: CHOLECALCIFEROL
     Dosage: 2000 IU?1 TABLET EVERY OTHER DAY
     Route: 048
  7. MUCINEX D [Concomitant]
     Active Substance: GUAIFENESIN\PSEUDOEPHEDRINE HYDROCHLORIDE
     Dosage: 120MG/1200MG
     Route: 048
  8. MELATONIN [Concomitant]
     Active Substance: MELATONIN
     Dosage: BEDTIME
     Route: 048
  9. VITAMIN B12 [Concomitant]
     Active Substance: CYANOCOBALAMIN
     Route: 048
  10. NIACIN [Concomitant]
     Active Substance: NIACIN
     Route: 048
  11. PALMETTO PLUS [Concomitant]
     Route: 048
  12. TAMSULOSIN [Concomitant]
     Active Substance: TAMSULOSIN
     Route: 048

REACTIONS (4)
  - Medication error [Unknown]
  - Off label use [Unknown]
  - Product dose omission issue [Unknown]
  - No adverse event [Unknown]
